FAERS Safety Report 16235290 (Version 1)
Quarter: 2019Q2

REPORT INFORMATION
  Report Type: Spontaneous
  Country: JP (occurrence: JP)
  Receive Date: 20190424
  Receipt Date: 20190424
  Transmission Date: 20190711
  Serious: Yes (Hospitalization)
  Sender: FDA-Public Use
  Company Number: JP-PFIZER INC-2019171310

PATIENT
  Age: 97 Year
  Sex: Female

DRUGS (3)
  1. LYRICA [Suspect]
     Active Substance: PREGABALIN
     Dosage: 25 MG, 1X/DAY AT EVENING
     Route: 048
  2. RIVOTRIL [Concomitant]
     Active Substance: CLONAZEPAM
  3. TRYPTANOL [AMITRIPTYLINE HYDROCHLORIDE] [Concomitant]

REACTIONS (2)
  - Femoral neck fracture [Unknown]
  - Fall [Unknown]
